FAERS Safety Report 7886907-1 (Version None)
Quarter: 2011Q4

REPORT INFORMATION
  Report Type: 
  Country: None (occurrence: None)
  Receive Date: 20111102
  Receipt Date: 20110712
  Transmission Date: 20120403
  Serious: No
  Sender: FDA-Public Use
  Company Number: US-AMGEN-USASP2011008640

PATIENT
  Age: 56 Year
  Sex: Female

DRUGS (3)
  1. ENBREL [Suspect]
     Dosage: UNK
  2. METHOTREXATE [Concomitant]
     Dosage: 10 MG, QWK
     Dates: start: 20030101
  3. ENBREL [Suspect]
     Indication: RHEUMATOID ARTHRITIS
     Dosage: 50 MG, QWK
     Dates: start: 20101001, end: 20110622

REACTIONS (12)
  - BACK PAIN [None]
  - ASTHENIA [None]
  - HYPERHIDROSIS [None]
  - DECREASED APPETITE [None]
  - FATIGUE [None]
  - RHEUMATOID ARTHRITIS [None]
  - BONE LOSS [None]
  - MALAISE [None]
  - WEIGHT DECREASED [None]
  - CYSTITIS [None]
  - NAUSEA [None]
  - INJECTION SITE ERYTHEMA [None]
